FAERS Safety Report 21567257 (Version 1)
Quarter: 2022Q4

REPORT INFORMATION
  Report Type: Spontaneous
  Country: US (occurrence: US)
  Receive Date: 20221108
  Receipt Date: 20221108
  Transmission Date: 20230113
  Serious: No
  Sender: FDA-Public Use
  Company Number: US-SA-SAC20221103000602

PATIENT
  Age: 4 Year
  Sex: Female

DRUGS (7)
  1. DUPIXENT [Suspect]
     Active Substance: DUPILUMAB
     Indication: Dermatitis atopic
     Dosage: 300 MG QM
     Route: 058
     Dates: start: 20220714
  2. ALBUTEROL SULFATE [Concomitant]
     Active Substance: ALBUTEROL SULFATE
  3. EPINEPHRINE [Concomitant]
     Active Substance: EPINEPHRINE
  4. EUCRISA [Concomitant]
     Active Substance: CRISABOROLE
  5. HYDROCORTISONE\NEOMYCIN SULFATE [Concomitant]
     Active Substance: HYDROCORTISONE\NEOMYCIN SULFATE
  6. HYDROXYZINE HYDROCHLORIDE [Concomitant]
     Active Substance: HYDROXYZINE HYDROCHLORIDE
  7. TRIAMCINOLONE [Concomitant]
     Active Substance: TRIAMCINOLONE

REACTIONS (1)
  - Product use issue [Unknown]

NARRATIVE: CASE EVENT DATE: 20220714
